FAERS Safety Report 21631496 (Version 1)
Quarter: 2022Q4

REPORT INFORMATION
  Report Type: Spontaneous
  Country: ES (occurrence: ES)
  Receive Date: 20221123
  Receipt Date: 20221123
  Transmission Date: 20230112
  Serious: Yes (Hospitalization)
  Sender: FDA-Public Use
  Company Number: None

PATIENT
  Age: 64 Year
  Sex: Male

DRUGS (13)
  1. IMBRUVICA [Suspect]
     Active Substance: IBRUTINIB
     Indication: B-cell lymphoma
     Dosage: 560.0 MG C/24 H
     Route: 048
     Dates: start: 20191126, end: 20220120
  2. FUROSEMIDE [Concomitant]
     Active Substance: FUROSEMIDE
     Indication: Oedema
     Dosage: 40.0 MG DECO
     Route: 048
     Dates: start: 20200911
  3. SULFAMETHOXAZOLE\TRIMETHOPRIM [Concomitant]
     Active Substance: SULFAMETHOXAZOLE\TRIMETHOPRIM
     Indication: Bronchitis chronic
     Dosage: 1.0 COMP C/72 HORAS
     Route: 048
     Dates: start: 20210825
  4. FOLIC ACID [Concomitant]
     Active Substance: FOLIC ACID
     Indication: Anaemia
     Dosage: 5.0 MG C/72 HORAS
     Route: 048
     Dates: start: 20200312
  5. ACETAMINOPHEN [Concomitant]
     Active Substance: ACETAMINOPHEN
     Indication: Diffuse large B-cell lymphoma
     Dosage: 1.0 G DECOCE
     Route: 048
     Dates: start: 20191119
  6. LAMIVUDINE [Concomitant]
     Active Substance: LAMIVUDINE
     Indication: Hepatitis B
     Dosage: 100.0 MG C/24 H
     Route: 048
     Dates: start: 20191127
  7. GLYCOPYRROLATE [Concomitant]
     Active Substance: GLYCOPYRROLATE
     Indication: Bronchitis chronic
     Dosage: 44.0 MCG C/24 H
     Dates: start: 20170907
  8. ELIQUIS [Suspect]
     Active Substance: APIXABAN
     Indication: Atrial fibrillation
     Dosage: 5.0 MG C/12 H
     Route: 048
     Dates: start: 20211014, end: 20220120
  9. SITAGLIPTIN PHOSPHATE [Concomitant]
     Active Substance: SITAGLIPTIN PHOSPHATE
     Indication: Type 2 diabetes mellitus
     Dosage: 100.0 MG C/24 H
     Route: 048
     Dates: start: 20200903
  10. DILTIAZEM [Concomitant]
     Active Substance: DILTIAZEM
     Indication: Hypertension
     Dosage: 120.0 MG DECE
     Route: 048
     Dates: start: 20210730
  11. ATROVENT [Concomitant]
     Active Substance: IPRATROPIUM BROMIDE
     Indication: Bronchitis chronic
     Dosage: 40.0 MCG C/6 HORAS
     Dates: start: 20200312
  12. FLUTICASONE FUROATE\VILANTEROL TRIFENATATE [Concomitant]
     Active Substance: FLUTICASONE FUROATE\VILANTEROL TRIFENATATE
     Indication: Bronchitis chronic
     Dosage: 1.0 PUFF C/24 H
     Dates: start: 20170907
  13. Simvastatina teva rimafar [Concomitant]
     Indication: Hyperlipidaemia
     Dosage: 10.0 MG CE
     Route: 048
     Dates: start: 20210222

REACTIONS (1)
  - Haemothorax [Recovered/Resolved]

NARRATIVE: CASE EVENT DATE: 20220119
